FAERS Safety Report 19004923 (Version 1)
Quarter: 2021Q1

REPORT INFORMATION
  Report Type: Spontaneous
  Country: US (occurrence: US)
  Receive Date: 20210312
  Receipt Date: 20210312
  Transmission Date: 20210420
  Serious: Yes (Other)
  Sender: FDA-Public Use
  Company Number: US-009507513-2103USA002728

PATIENT
  Age: 74 Year
  Sex: Female

DRUGS (1)
  1. KEYTRUDA [Suspect]
     Active Substance: PEMBROLIZUMAB
     Indication: LUNG ADENOCARCINOMA
     Dosage: 200 MG IV Q 3 WEEKS
     Route: 042
     Dates: start: 20210216

REACTIONS (6)
  - Stevens-Johnson syndrome [Unknown]
  - Candida infection [Not Recovered/Not Resolved]
  - Exfoliative rash [Not Recovered/Not Resolved]
  - Drug ineffective [Unknown]
  - Tongue coated [Not Recovered/Not Resolved]
  - Rash vesicular [Not Recovered/Not Resolved]
